FAERS Safety Report 18076633 (Version 1)
Quarter: 2020Q3

REPORT INFORMATION
  Report Type: Spontaneous
  Country: CH (occurrence: CH)
  Receive Date: 20200727
  Receipt Date: 20200727
  Transmission Date: 20201103
  Serious: Yes (Hospitalization)
  Sender: FDA-Public Use
  Company Number: CH-BAYER-2020-145526

PATIENT
  Age: 25 Year
  Sex: Male

DRUGS (6)
  1. CIPROFLOXACIN. [Suspect]
     Active Substance: CIPROFLOXACIN
     Indication: BACTERIAL SEPSIS
     Dosage: 500 MG, BID
     Route: 048
  2. VANCOMICINA [VANCOMYCIN HYDROCHLORIDE] [Concomitant]
     Active Substance: VANCOMYCIN HYDROCHLORIDE
     Indication: SEPSIS
     Dosage: 1 G, BID
     Route: 042
  3. CIPROFLOXACIN. [Suspect]
     Active Substance: CIPROFLOXACIN
     Indication: BACTERIAL SEPSIS
     Dosage: 400 MG, BID
     Route: 042
  4. CIPROFLOXACIN. [Suspect]
     Active Substance: CIPROFLOXACIN
     Indication: BACTERIAL SEPSIS
     Dosage: 400 MG, BID
     Route: 042
  5. AMOXICILIN/CLAVULANIC ACID KRKA [Concomitant]
     Indication: SEPSIS
     Dosage: 750 MG, Q8HR
     Route: 048
  6. AMOXICILIN/CLAVULANIC ACID KRKA [Concomitant]
     Indication: SEPSIS
     Dosage: 4 G, Q8HR
     Route: 042

REACTIONS (5)
  - Chest pain [Recovered/Resolved]
  - Off label use [None]
  - Product use in unapproved indication [None]
  - Asthenia [Recovered/Resolved]
  - Diarrhoea [Recovered/Resolved]
